FAERS Safety Report 7628723-1 (Version None)
Quarter: 2011Q3

REPORT INFORMATION
  Report Type: 
  Country: None (occurrence: None)
  Receive Date: 20110722
  Receipt Date: 20110715
  Transmission Date: 20111222
  Serious: Yes (Other)
  Sender: FDA-Public Use
  Company Number: AU-B.I. PHARMACEUTICALS,INC./RIDGEFIELD-2011-AU-00530AU

PATIENT
  Sex: Male
  Weight: 83 kg

DRUGS (23)
  1. ASMOL [Concomitant]
     Dosage: 1 PRN
     Route: 055
  2. NEMDYN [Concomitant]
     Dosage: DAILY TO RIGHT EAR
     Route: 061
  3. PREDNISONE [Concomitant]
     Dosage: AS DIRECTED
     Route: 048
  4. REFRESH LIQUIGEL [Concomitant]
     Dosage: APPLY FREQUENTLY TO BOTH EYES
     Route: 031
  5. PANTOPRAZOLE [Concomitant]
     Dosage: 40 MG
     Route: 048
  6. WARFARIN SODIUM [Concomitant]
     Dosage: 1 AS DIRECTED
     Route: 048
  7. EFFEXOR XR [Concomitant]
     Dosage: 150 MG
     Route: 048
  8. FOSAMAX [Concomitant]
     Dosage: ONCE WEEKLY
     Route: 048
  9. LIPITOR [Concomitant]
     Dosage: 40 MG
     Route: 048
  10. NITROLINGUAL [Concomitant]
     Dosage: 1 SPRAY S/L FOR ANGINA PAIN
  11. ELOCON [Concomitant]
     Dosage: 0.1% APPLY AT NIGHT FOR 10 DAYS
     Route: 061
  12. LACRI-LUBE [Concomitant]
     Dosage: APPLY AT NIGHT
     Route: 031
  13. BACTRIM DS [Concomitant]
     Dosage: 1 TWICE DAILY
     Route: 048
  14. MS CONTIN [Concomitant]
     Dosage: 10 MG
     Route: 048
  15. PANAMAX [Concomitant]
     Dosage: 2000 MG
     Route: 048
  16. ASMOL [Concomitant]
     Dosage: 2 PUFFS PRN
     Route: 055
  17. PRADAXA [Suspect]
     Indication: CEREBROVASCULAR ACCIDENT PROPHYLAXIS
     Dosage: 220 MG
     Route: 048
     Dates: start: 20110712, end: 20110714
  18. SPIRIVA [Suspect]
     Dosage: 18 MCG
     Route: 055
  19. CORTIVAL [Concomitant]
     Dosage: 0.02% APPLY TWICE DAILY
     Route: 061
  20. DIGOXIN [Concomitant]
     Dosage: 250 MCG
     Route: 048
  21. FUROSEMIDE [Concomitant]
     Dosage: 40 MG
     Route: 048
  22. SERETIDE [Concomitant]
     Dosage: 1000 MCG
     Route: 055
  23. BRICANYL [Concomitant]
     Dosage: 1 PRN
     Route: 055

REACTIONS (1)
  - RECTAL HAEMORRHAGE [None]
